FAERS Safety Report 13637092 (Version 1)
Quarter: 2017Q2

REPORT INFORMATION
  Report Type: Spontaneous
  Country: FR (occurrence: FR)
  Receive Date: 20170609
  Receipt Date: 20170609
  Transmission Date: 20170830
  Serious: Yes (Hospitalization)
  Sender: FDA-Public Use
  Company Number: FR-PFIZER INC-2017242716

PATIENT
  Age: 62 Year
  Sex: Male

DRUGS (10)
  1. METHADONE [Suspect]
     Active Substance: METHADONE HYDROCHLORIDE
     Dosage: 4 MG, 3X/DAY IN THE MORNING, AT NOON, AND IN THE EVENING
     Route: 048
     Dates: start: 201701
  2. NEURONTIN [Concomitant]
     Active Substance: GABAPENTIN
     Dosage: 6 DF, 3X/DAY IN THE MORNING, AT NOON, IN THE EVENING
     Route: 048
     Dates: start: 201611
  3. DOLIPRANE [Concomitant]
     Active Substance: ACETAMINOPHEN
     Dosage: 1 DF, 4X/DAY EVERY 6 HOURS
     Route: 048
     Dates: start: 201611
  4. CORTANCYL [Concomitant]
     Active Substance: PREDNISONE
     Dosage: 1 DF, 1X/DAY IN THE EVENING
     Dates: start: 201611
  5. METHADONE [Suspect]
     Active Substance: METHADONE HYDROCHLORIDE
     Dosage: UNK
     Route: 048
     Dates: start: 20161230
  6. INEXIUM /01479302/ [Concomitant]
     Active Substance: ESOMEPRAZOLE MAGNESIUM
     Dosage: 1 DF, 1X/DAY IN THE EVENING
     Dates: start: 201611
  7. METHADONE [Suspect]
     Active Substance: METHADONE HYDROCHLORIDE
     Dosage: 7 MG, 3X/DAY IN THE MORNING, AT NOON, AND IN THE EVENING
     Route: 048
     Dates: start: 201701
  8. XANAX [Suspect]
     Active Substance: ALPRAZOLAM
     Dosage: 3X/DAY (1 DF IN THE MORNING, 1 DF AT NOON, 2 DF IN THE EVENING)
     Route: 048
     Dates: start: 201611
  9. EFFEXOR LP [Concomitant]
     Active Substance: VENLAFAXINE HYDROCHLORIDE
     Dosage: 1 DF, 1X/DAY IN THE MORNING
     Route: 048
     Dates: start: 201611
  10. OXYCONTIN [Concomitant]
     Active Substance: OXYCODONE HYDROCHLORIDE
     Dosage: 40 MG, 2X/DAY IN THE MORNING AND IN THE EVENING

REACTIONS (5)
  - Somnolence [Recovered/Resolved]
  - Drug use disorder [Unknown]
  - General physical health deterioration [Unknown]
  - Withdrawal syndrome [Recovering/Resolving]
  - Overdose [Recovered/Resolved]

NARRATIVE: CASE EVENT DATE: 20161227
